FAERS Safety Report 16644152 (Version 1)
Quarter: 2019Q3

REPORT INFORMATION
  Report Type: Spontaneous
  Country: IT (occurrence: IT)
  Receive Date: 20190729
  Receipt Date: 20190729
  Transmission Date: 20191004
  Serious: Yes (Hospitalization)
  Sender: FDA-Public Use
  Company Number: PHHY2019IT172111

PATIENT
  Age: 10 Year
  Sex: Male

DRUGS (1)
  1. TEGRETOL [Suspect]
     Active Substance: CARBAMAZEPINE
     Indication: STATUS EPILEPTICUS
     Dosage: 200 MG, QD
     Route: 048
     Dates: start: 20190527, end: 20190714

REACTIONS (4)
  - Hepatosplenomegaly [Recovering/Resolving]
  - Q fever [Recovering/Resolving]
  - Conjunctival hyperaemia [Recovering/Resolving]
  - Rash scarlatiniform [Recovering/Resolving]

NARRATIVE: CASE EVENT DATE: 20190714
